FAERS Safety Report 8601638-8 (Version None)
Quarter: 2012Q3

REPORT INFORMATION
  Report Type: 
  Country: None (occurrence: None)
  Receive Date: 20120817
  Receipt Date: 20120106
  Transmission Date: 20120928
  Serious: Yes (Hospitalization)
  Sender: FDA-Public Use
  Company Number: US-BRISTOL-MYERS SQUIBB COMPANY-16334120

PATIENT
  Age: 66 Year
  Sex: Female
  Weight: 45 kg

DRUGS (1)
  1. SPRYCEL [Suspect]
     Dates: start: 20101216, end: 20110901

REACTIONS (5)
  - MUSCULAR WEAKNESS [None]
  - DYSPNOEA [None]
  - DECREASED APPETITE [None]
  - PLEURAL EFFUSION [None]
  - WEIGHT DECREASED [None]
